FAERS Safety Report 8184991-1 (Version None)
Quarter: 2012Q1

REPORT INFORMATION
  Report Type: 
  Country: None (occurrence: None)
  Receive Date: 20120305
  Receipt Date: 20120301
  Transmission Date: 20120608
  Serious: Yes (Other)
  Sender: FDA-Public Use
  Company Number: DE-GLAXOSMITHKLINE-D0074666A

PATIENT
  Sex: Male

DRUGS (1)
  1. ARIXTRA [Suspect]
     Dosage: 2.5MG UNKNOWN
     Route: 065

REACTIONS (2)
  - OFF LABEL USE [None]
  - HAEMORRHAGE [None]
